FAERS Safety Report 14350519 (Version 2)
Quarter: 2018Q1

REPORT INFORMATION
  Report Type: Spontaneous
  Country: DE (occurrence: DE)
  Receive Date: 20180104
  Receipt Date: 20180215
  Transmission Date: 20180509
  Serious: Yes (Hospitalization, Other)
  Sender: FDA-Public Use
  Company Number: DE-MYLANLABS-2017M1083293

PATIENT
  Age: 34 Month
  Sex: Male
  Weight: 12.2 kg

DRUGS (42)
  1. DAUNORUBICIN [Suspect]
     Active Substance: DAUNORUBICIN
     Indication: ACUTE LYMPHOCYTIC LEUKAEMIA
     Dosage: 16 MG, QD
     Route: 042
     Dates: start: 20160118, end: 20160119
  2. METHOTREXATE. [Suspect]
     Active Substance: METHOTREXATE
     Dosage: 2600 MG, QD
     Route: 042
     Dates: start: 20160114, end: 20160115
  3. CYTARABINE. [Suspect]
     Active Substance: CYTARABINE
     Dosage: 41 MG, QD
     Route: 042
     Dates: start: 20151102, end: 20151105
  4. VINCRISTINE [Suspect]
     Active Substance: VINCRISTINE
     Indication: PHILADELPHIA CHROMOSOME POSITIVE
     Dosage: 0.8 MG, UNK
     Route: 042
     Dates: start: 20160704
  5. CYCLOPHOSPHAMIDE. [Suspect]
     Active Substance: CYCLOPHOSPHAMIDE
     Indication: PHILADELPHIA CHROMOSOME POSITIVE
     Dosage: 550 MG, QD
     Route: 042
     Dates: start: 20151017, end: 20151017
  6. ASPARAGINASE [Suspect]
     Active Substance: ASPARAGINASE
     Dosage: 13000 IU, QD
     Route: 042
     Dates: start: 20160209, end: 20160209
  7. CYTARABINE. [Suspect]
     Active Substance: CYTARABINE
     Indication: PHILADELPHIA CHROMOSOME POSITIVE
     Dosage: 41 MG, QD
     Route: 042
     Dates: start: 20151026, end: 20151029
  8. VINCRISTINE [Suspect]
     Active Substance: VINCRISTINE
     Dosage: 0.8 MG, UNK
     Route: 042
     Dates: start: 20160627
  9. GLIVEC [Suspect]
     Active Substance: IMATINIB MESYLATE
     Indication: PHILADELPHIA CHROMOSOME POSITIVE
  10. CYCLOPHOSPHAMIDE. [Suspect]
     Active Substance: CYCLOPHOSPHAMIDE
     Dosage: 110 MG, UNK
     Route: 042
     Dates: start: 20151219, end: 20151221
  11. METHOTREXATE. [Suspect]
     Active Substance: METHOTREXATE
     Indication: ACUTE LYMPHOCYTIC LEUKAEMIA
     Dosage: 2700 MG, QD
     Route: 042
     Dates: start: 20151218, end: 20151219
  12. ASPARAGINASE [Suspect]
     Active Substance: ASPARAGINASE
     Indication: ACUTE LYMPHOCYTIC LEUKAEMIA
     Dosage: 5400 IU, UNK
     Route: 042
  13. CYTARABINE. [Suspect]
     Active Substance: CYTARABINE
     Indication: ACUTE LYMPHOCYTIC LEUKAEMIA
     Dosage: 41 MG, QD
     Route: 042
     Dates: start: 20151109, end: 20151112
  14. VINCRISTINE [Suspect]
     Active Substance: VINCRISTINE
     Dosage: 0.8 MG, UNK
     Route: 042
     Dates: start: 20151223, end: 20151223
  15. VINCRISTINE [Suspect]
     Active Substance: VINCRISTINE
     Dosage: 0.8 MG, UNK
     Route: 042
     Dates: start: 20160303, end: 20160303
  16. ASPARAGINASE [Suspect]
     Active Substance: ASPARAGINASE
     Dosage: 1300 IU, QD
     Route: 042
     Dates: start: 20160303
  17. VINCRISTINE [Suspect]
     Active Substance: VINCRISTINE
     Indication: ACUTE LYMPHOCYTIC LEUKAEMIA
     Dosage: 0.8 MG, QD
     Route: 042
     Dates: start: 20160310
  18. VINCRISTINE [Suspect]
     Active Substance: VINCRISTINE
     Dosage: 0.8 MG, UNK
     Route: 042
     Dates: start: 20160712
  19. VINCRISTINE [Suspect]
     Active Substance: VINCRISTINE
     Dosage: 1.6 MG, UNK
     Route: 042
     Dates: start: 20160119, end: 20160119
  20. ETOPOSIDE. [Suspect]
     Active Substance: ETOPOSIDE
     Indication: ACUTE LYMPHOCYTIC LEUKAEMIA
     Dosage: 52 MG, UNK
     Route: 042
     Dates: start: 20160206, end: 20160208
  21. ETOPOSIDE. [Suspect]
     Active Substance: ETOPOSIDE
     Indication: PHILADELPHIA CHROMOSOME POSITIVE
  22. CYTARABINE. [Suspect]
     Active Substance: CYTARABINE
     Dosage: 42 MG, UNK
     Route: 042
  23. CYCLOPHOSPHAMIDE. [Suspect]
     Active Substance: CYCLOPHOSPHAMIDE
     Indication: ACUTE LYMPHOCYTIC LEUKAEMIA
     Dosage: 550 MG, QD
     Route: 042
     Dates: start: 20151203, end: 20151203
  24. IFOSFAMIDE. [Suspect]
     Active Substance: IFOSFAMIDE
     Indication: ACUTE LYMPHOCYTIC LEUKAEMIA
     Dosage: 416 MG, QD
     Route: 042
     Dates: start: 20160115, end: 20160117
  25. IFOSFAMIDE. [Suspect]
     Active Substance: IFOSFAMIDE
     Indication: PHILADELPHIA CHROMOSOME POSITIVE
  26. DAUNORUBICIN [Suspect]
     Active Substance: DAUNORUBICIN
     Indication: PHILADELPHIA CHROMOSOME POSITIVE
  27. MERCAPTOPURINE. [Suspect]
     Active Substance: MERCAPTOPURINE
     Indication: PRODUCT USED FOR UNKNOWN INDICATION
     Route: 048
  28. ASPARAGINASE [Suspect]
     Active Substance: ASPARAGINASE
     Dosage: 13500 IU, QD
     Route: 042
     Dates: start: 20151223, end: 20151223
  29. CYTARABINE. [Suspect]
     Active Substance: CYTARABINE
     Dosage: 41 MG, QD
     Route: 042
     Dates: start: 20151019, end: 20151222
  30. CYTARABINE. [Suspect]
     Active Substance: CYTARABINE
     Dosage: 1040 MG, UNK
     Route: 042
     Dates: start: 20160204, end: 20160206
  31. VINCRISTINE [Suspect]
     Active Substance: VINCRISTINE
     Dosage: 0.8 MG, UNK
     Route: 042
     Dates: start: 20160317
  32. GLIVEC [Suspect]
     Active Substance: IMATINIB MESYLATE
     Indication: ACUTE LYMPHOCYTIC LEUKAEMIA
     Dosage: 150 MG, QD
     Route: 048
     Dates: start: 20150921, end: 20170307
  33. DOXORUBICIN [Suspect]
     Active Substance: DOXORUBICIN
     Indication: PHILADELPHIA CHROMOSOME POSITIVE
  34. CYCLOPHOSPHAMIDE. [Suspect]
     Active Substance: CYCLOPHOSPHAMIDE
     Dosage: 550 MG, QD
     Route: 042
     Dates: start: 20160730, end: 20160730
  35. MERCAPTOPURINE. [Suspect]
     Active Substance: MERCAPTOPURINE
     Route: 037
  36. CYTARABINE. [Suspect]
     Active Substance: CYTARABINE
     Dosage: 2160 MG, QD
     Route: 042
     Dates: start: 20151221
  37. VINCRISTINE [Suspect]
     Active Substance: VINCRISTINE
     Dosage: 0.8 MG, UNK
     Route: 042
     Dates: start: 20160324
  38. VINCRISTINE [Suspect]
     Active Substance: VINCRISTINE
     Dosage: 0.8 MG, UNK
     Route: 042
     Dates: start: 20151218
  39. VINCRISTINE [Suspect]
     Active Substance: VINCRISTINE
     Dosage: 0.8 MG, UNK
     Route: 042
     Dates: start: 20160620
  40. DOXORUBICIN [Suspect]
     Active Substance: DOXORUBICIN
     Indication: ACUTE LYMPHOCYTIC LEUKAEMIA
     Dosage: 13.5 MG, UNK
     Route: 042
  41. CYCLOPHOSPHAMIDE. [Suspect]
     Active Substance: CYCLOPHOSPHAMIDE
     Dosage: 560 MG, UNK
     Route: 042
     Dates: start: 20160416, end: 20160416
  42. VINDESINE [Suspect]
     Active Substance: VINDESINE
     Indication: PRODUCT USED FOR UNKNOWN INDICATION

REACTIONS (12)
  - Pyrexia [Unknown]
  - Upper respiratory tract infection [Recovered/Resolved]
  - Neutropenia [Recovered/Resolved]
  - Urinary tract infection [Unknown]
  - Lymphopenia [Unknown]
  - Hypoxia [Unknown]
  - Constipation [Unknown]
  - Febrile neutropenia [Recovered/Resolved]
  - Pruritus [Unknown]
  - Muscular weakness [Unknown]
  - Stomatitis [Unknown]
  - Infectious colitis [Unknown]

NARRATIVE: CASE EVENT DATE: 20151110
